FAERS Safety Report 4426094-5 (Version None)
Quarter: 2004Q3

REPORT INFORMATION
  Report Type: 
  Country: None (occurrence: None)
  Receive Date: 20040811
  Receipt Date: 20040726
  Transmission Date: 20050211
  Serious: Yes (Life-Threatening)
  Sender: FDA-Public Use
  Company Number: BRO-007668

PATIENT
  Age: 5 Year
  Sex: Male

DRUGS (1)
  1. PROHANCE [Suspect]
     Dosage: 5 ML SY

REACTIONS (2)
  - ANAESTHETIC COMPLICATION [None]
  - COMA [None]
